FAERS Safety Report 12566492 (Version 1)
Quarter: 2016Q3

REPORT INFORMATION
  Report Type: Spontaneous
  Country: US (occurrence: US)
  Receive Date: 20160718
  Receipt Date: 20160718
  Transmission Date: 20161109
  Serious: No
  Sender: FDA-Public Use
  Company Number: US-BAYER-2016-130713

PATIENT
  Age: 75 Year
  Sex: Female

DRUGS (2)
  1. CLIMARA [Suspect]
     Active Substance: ESTRADIOL
     Dosage: UNK
     Route: 062
     Dates: start: 201606
  2. CLIMARA [Suspect]
     Active Substance: ESTRADIOL
     Dosage: UNK
     Dates: start: 201606

REACTIONS (4)
  - Product packaging issue [None]
  - Application site erythema [Recovered/Resolved]
  - Product adhesion issue [None]
  - Application site erythema [None]

NARRATIVE: CASE EVENT DATE: 201606
